FAERS Safety Report 25571288 (Version 1)
Quarter: 2025Q3

REPORT INFORMATION
  Report Type: Spontaneous
  Country: US (occurrence: US)
  Receive Date: 20250717
  Receipt Date: 20250717
  Transmission Date: 20251020
  Serious: No
  Sender: LUPIN
  Company Number: US-LUPIN PHARMACEUTICALS INC.-2025-06230

PATIENT
  Age: 45 Year

DRUGS (3)
  1. TOLVAPTAN [Interacting]
     Active Substance: TOLVAPTAN
     Indication: Product used for unknown indication
     Route: 065
  2. TOLVAPTAN [Interacting]
     Active Substance: TOLVAPTAN
     Indication: Product used for unknown indication
     Route: 065
  3. UBRELVY [Interacting]
     Active Substance: UBROGEPANT
     Indication: Product used for unknown indication
     Route: 065

REACTIONS (1)
  - Drug interaction [Unknown]
